FAERS Safety Report 7851496-4 (Version None)
Quarter: 2011Q4

REPORT INFORMATION
  Report Type: 
  Country: None (occurrence: None)
  Receive Date: 20111026
  Receipt Date: 20111021
  Transmission Date: 20120403
  Serious: Yes (Hospitalization, Other)
  Sender: FDA-Public Use
  Company Number: US-TEVA-286580USA

PATIENT
  Sex: Male
  Weight: 83.99 kg

DRUGS (8)
  1. JANUMET [Concomitant]
  2. ATENOLOL [Concomitant]
  3. ROSUVASTATIN [Concomitant]
  4. OMEPRAZOLE [Concomitant]
  5. FEXOFENADINE [Concomitant]
  6. GINGER ROOT [Concomitant]
  7. AZILECT [Suspect]
     Indication: PARKINSON'S DISEASE
     Dosage: 1 MILLIGRAM;
     Route: 048
     Dates: start: 20070427
  8. MULTI-VITAMINS [Concomitant]

REACTIONS (2)
  - PROSTATE CANCER [None]
  - PROSTATIC SPECIFIC ANTIGEN INCREASED [None]
